FAERS Safety Report 4679529-7 (Version None)
Quarter: 2005Q2

REPORT INFORMATION
  Report Type: 
  Country: None (occurrence: None)
  Receive Date: 20050531
  Receipt Date: 20050517
  Transmission Date: 20051028
  Serious: Yes (Hospitalization)
  Sender: FDA-Public Use
  Company Number: 11180

PATIENT
  Sex: 0

DRUGS (3)
  1. FLUOROURACIL [Suspect]
     Dosage: 400 MG/M2 PER_CYCLE/2.4 G/M2 PER_CYCLE INJ
  2. LEUCOVORIN [Suspect]
     Dosage: 400 MG/M2 PER-CYCLE, IV
     Route: 042
  3. OXALIPLATIN [Suspect]
     Dosage: 100 MG/M2 PER_CYCLE IV
     Route: 042

REACTIONS (4)
  - CHILLS [None]
  - DISEASE PROGRESSION [None]
  - DRUG TOXICITY [None]
  - PYREXIA [None]
